FAERS Safety Report 6341849-8 (Version None)
Quarter: 2009Q3

REPORT INFORMATION
  Report Type: 
  Country: None (occurrence: None)
  Receive Date: 20090902
  Receipt Date: 20090625
  Transmission Date: 20100115
  Serious: Yes (Hospitalization)
  Sender: FDA-Public Use
  Company Number: US-2009-00175

PATIENT
  Age: 76 Year
  Sex: Female

DRUGS (1)
  1. LEVETIRACETAM [Suspect]
     Dosage: PATIENT HAD SIMILAR EVENT FOLLOWING IV LEVETIRACETAM
     Dates: start: 20070103, end: 20070104

REACTIONS (1)
  - PANCYTOPENIA [None]
